FAERS Safety Report 9936834 (Version 1)
Quarter: 2014Q1

REPORT INFORMATION
  Report Type: Spontaneous
  Country: GB (occurrence: None)
  Receive Date: 20140110
  Receipt Date: 20140110
  Transmission Date: 20141002
  Serious: Yes (Other)
  Sender: FDA-Public Use
  Company Number: E2B_00001473

PATIENT
  Age: 56 Year
  Sex: Female
  Weight: 69.85 kg

DRUGS (4)
  1. LEVETIRACETAM [Suspect]
     Indication: EPILEPSY
     Dosage: 500 MG (250 MG, 2 IN 1 D), ORAL
     Route: 048
     Dates: start: 20131103, end: 20131106
  2. CARBAMAZEPINE (TEGRETOL) [Concomitant]
  3. THYROXINE [Concomitant]
  4. RAMIPRIL (RAMIPRIL) [Concomitant]

REACTIONS (5)
  - Dizziness [None]
  - Nausea [None]
  - Asthenia [None]
  - Depressed mood [None]
  - Headache [None]
